FAERS Safety Report 12868922 (Version 1)
Quarter: 2016Q4

REPORT INFORMATION
  Report Type: Spontaneous
  Country: US (occurrence: US)
  Receive Date: 20161021
  Receipt Date: 20161021
  Transmission Date: 20170207
  Serious: No
  Sender: FDA-Public Use
  Company Number: US-PFIZER INC-2016489657

PATIENT
  Age: 58 Year
  Sex: Male
  Weight: 78.46 kg

DRUGS (2)
  1. GRALISE [Suspect]
     Active Substance: GABAPENTIN
     Indication: NEURALGIA
     Dosage: UNK, 1X/DAY
     Route: 048
     Dates: start: 20160811, end: 20160925
  2. LYRICA [Suspect]
     Active Substance: PREGABALIN
     Indication: NEURALGIA
     Dosage: UNK(MG)
     Route: 048
     Dates: start: 201608, end: 201609

REACTIONS (2)
  - Constipation [Recovered/Resolved]
  - Dyspepsia [Recovered/Resolved]

NARRATIVE: CASE EVENT DATE: 2016
